FAERS Safety Report 14923640 (Version 2)
Quarter: 2018Q2

REPORT INFORMATION
  Report Type: Spontaneous
  Country: GB (occurrence: GB)
  Receive Date: 20180522
  Receipt Date: 20180525
  Transmission Date: 20180711
  Serious: Yes (Other)
  Sender: FDA-Public Use
  Company Number: GB-PFIZER INC-2018202440

PATIENT
  Age: 5 Year
  Sex: Male

DRUGS (7)
  1. ASPIRIN. [Concomitant]
     Active Substance: ASPIRIN
     Indication: MOYAMOYA DISEASE
     Dosage: UNK
  2. CISPLATIN. [Concomitant]
     Active Substance: CISPLATIN
     Dosage: DOSE REDUCTIONS BY 25% FROM CYCLE 3
     Route: 042
  3. CISPLATIN. [Concomitant]
     Active Substance: CISPLATIN
     Indication: HEPATOCELLULAR CARCINOMA
     Dosage: 80 MG/M2, DAY 1, EVERY 3 WEEKS
     Route: 042
  4. SORAFENIB [Concomitant]
     Active Substance: SORAFENIB
     Dosage: DOSE REDUCTION BY 50% FOLLOWING THE FIRST CYCLE
     Route: 048
  5. DOXORUBICIN [Suspect]
     Active Substance: DOXORUBICIN
     Dosage: DOXORUBICIN BY 25% FOR CYCLES 5 AND 6
     Route: 042
  6. SORAFENIB [Concomitant]
     Active Substance: SORAFENIB
     Indication: HEPATOCELLULAR CARCINOMA
     Dosage: 200 MG/M2/DAY, CYCLIC
     Route: 048
  7. DOXORUBICIN [Suspect]
     Active Substance: DOXORUBICIN
     Indication: HEPATOCELLULAR CARCINOMA
     Dosage: 30 MG/M2, CYCLIC (ON DAYS 2 AND 3, EVERY 3 WEEKS)
     Route: 042

REACTIONS (1)
  - Neutropenia [Unknown]
